FAERS Safety Report 8589926-5 (Version None)
Quarter: 2012Q3

REPORT INFORMATION
  Report Type: 
  Country: None (occurrence: None)
  Receive Date: 20120813
  Receipt Date: 20120112
  Transmission Date: 20120928
  Serious: Yes (Hospitalization)
  Sender: FDA-Public Use
  Company Number: US-ROCHE-1098181

PATIENT
  Age: 64 Year
  Sex: Female

DRUGS (1)
  1. ACTIVASE [Suspect]
     Indication: PRODUCT USED FOR UNKNOWN INDICATION

REACTIONS (3)
  - INFARCTION [None]
  - CHEST PAIN [None]
  - BLOOD PRESSURE DECREASED [None]
